FAERS Safety Report 10699222 (Version 1)
Quarter: 2015Q1

REPORT INFORMATION
  Report Type: Spontaneous
  Country: US (occurrence: US)
  Receive Date: 20150108
  Receipt Date: 20150108
  Transmission Date: 20150721
  Serious: No
  Sender: FDA-Public Use
  Company Number: US-BRISTOL-MYERS SQUIBB COMPANY-BMS-2014-000767

PATIENT
  Age: 67 Year
  Sex: Male
  Weight: 61.22 kg

DRUGS (1)
  1. ABILIFY [Suspect]
     Active Substance: ARIPIPRAZOLE
     Indication: DEPRESSION
     Dosage: 5 MG, QD
     Route: 048

REACTIONS (6)
  - Vertigo [Unknown]
  - Dizziness [Unknown]
  - Pain in extremity [Unknown]
  - Syncope [Unknown]
  - Myalgia [Unknown]
  - Wrong technique in drug usage process [Unknown]

NARRATIVE: CASE EVENT DATE: 20141203
